FAERS Safety Report 7209597-X (Version None)
Quarter: 2011Q1

REPORT INFORMATION
  Report Type: 
  Country: None (occurrence: None)
  Receive Date: 20110104
  Receipt Date: 20101228
  Transmission Date: 20110831
  Serious: Yes (Other)
  Sender: FDA-Public Use
  Company Number: US-PFIZER INC-2010180994

PATIENT
  Sex: Female
  Weight: 90.264 kg

DRUGS (3)
  1. MULTIVITAMIN [Concomitant]
     Dosage: UNK
  2. SULFASALAZINE [Suspect]
     Indication: COLITIS
     Dosage: 2X/DAY
     Dates: start: 20100101, end: 20100101
  3. ASACOL [Suspect]
     Indication: COLITIS
     Dosage: UNK
     Dates: start: 20100101

REACTIONS (3)
  - APHONIA [None]
  - BRONCHITIS [None]
  - ASTHMA [None]
